FAERS Safety Report 4304188-2 (Version None)
Quarter: 2004Q1

REPORT INFORMATION
  Report Type: 
  Country: None (occurrence: None)
  Receive Date: 20040224
  Receipt Date: 20040213
  Transmission Date: 20041129
  Serious: Yes (Life-Threatening)
  Sender: FDA-Public Use
  Company Number: 2004AP00770

PATIENT
  Age: 77 Year
  Sex: Male

DRUGS (3)
  1. OMEPRAZOLE [Suspect]
     Indication: REFLUX OESOPHAGITIS
     Dates: start: 20040101
  2. PREDONINE [Concomitant]
  3. MACMET [Concomitant]

REACTIONS (1)
  - INTERSTITIAL LUNG DISEASE [None]
